FAERS Safety Report 19595376 (Version 2)
Quarter: 2021Q3

REPORT INFORMATION
  Report Type: Spontaneous
  Country: US (occurrence: US)
  Receive Date: 20210723
  Receipt Date: 20210823
  Transmission Date: 20211014
  Serious: No
  Sender: FDA-Public Use
  Company Number: US-SA-2021SA240536

PATIENT
  Age: 44 Year
  Sex: Female

DRUGS (1)
  1. DUPIXENT [Suspect]
     Active Substance: DUPILUMAB
     Indication: ASTHMA
     Dosage: 300 MG, QOW
     Route: 058
     Dates: start: 20210428

REACTIONS (7)
  - Dyspnoea [Unknown]
  - Hypersensitivity [Unknown]
  - Speech disorder [Unknown]
  - Asthma [Unknown]
  - Dry eye [Unknown]
  - Product use issue [Unknown]
  - Throat tightness [Unknown]

NARRATIVE: CASE EVENT DATE: 2021
